FAERS Safety Report 7318851-2 (Version None)
Quarter: 2011Q1

REPORT INFORMATION
  Report Type: 
  Country: None (occurrence: None)
  Receive Date: 20110228
  Receipt Date: 20101021
  Transmission Date: 20110831
  Serious: No
  Sender: FDA-Public Use
  Company Number: A0888040A

PATIENT
  Age: 30 Year
  Sex: Male

DRUGS (1)
  1. IMITREX [Suspect]
     Dosage: 6MG SINGLE DOSE
     Route: 042
     Dates: start: 20101021

REACTIONS (2)
  - BURNING SENSATION [None]
  - INCORRECT ROUTE OF DRUG ADMINISTRATION [None]
